FAERS Safety Report 5026100-3 (Version None)
Quarter: 2006Q2

REPORT INFORMATION
  Report Type: 
  Country: None (occurrence: None)
  Receive Date: 20060614
  Receipt Date: 20060529
  Transmission Date: 20061013
  Serious: Yes (Other)
  Sender: FDA-Public Use
  Company Number: SE-NOVOPROD-254052

PATIENT
  Age: 9 Year
  Sex: Male
  Weight: 54 kg

DRUGS (2)
  1. ACTRAPID HM(GE) [Suspect]
     Indication: DIABETES MELLITUS INSULIN-DEPENDENT
     Dates: start: 19990913
  2. INSULATARD HM(GE) [Suspect]
     Indication: DIABETES MELLITUS INSULIN-DEPENDENT
     Dates: start: 19990913

REACTIONS (1)
  - LOSS OF CONSCIOUSNESS [None]
